FAERS Safety Report 5313674-8 (Version None)
Quarter: 2007Q2

REPORT INFORMATION
  Report Type: 
  Country: None (occurrence: None)
  Receive Date: 20070430
  Receipt Date: 20070430
  Transmission Date: 20071010
  Serious: No
  Sender: FDA-Public Use
  Company Number: None

PATIENT

DRUGS (2)
  1. HYDROMORPHONE HYDROCHLORIDE [Suspect]
     Dosage: INJECTABLE  SYRINGE, PRE-FILLED
  2. MORPHINE SULFATE [Suspect]
     Dosage: INJECTABLE  SYRINGE, PRE-FILLED

REACTIONS (4)
  - DRUG DOSE OMISSION [None]
  - MEDICATION ERROR [None]
  - PAIN [None]
  - PHARMACEUTICAL PRODUCT COMPLAINT [None]
